FAERS Safety Report 9702987 (Version 2)
Quarter: 2014Q1

REPORT INFORMATION
  Report Type: Spontaneous
  Country: CA (occurrence: CA)
  Receive Date: 20131122
  Receipt Date: 20140205
  Transmission Date: 20141002
  Serious: Yes (Death, Hospitalization)
  Sender: FDA-Public Use
  Company Number: CA-AMGEN-CANSP2013081385

PATIENT
  Age: 77 Year
  Sex: Male

DRUGS (1)
  1. PROLIA [Suspect]
     Indication: BONE DENSITY INCREASED
     Dosage: UNK
     Route: 065
     Dates: start: 20120207

REACTIONS (2)
  - Death [Fatal]
  - Hospitalisation [Unknown]
